FAERS Safety Report 5825175-9 (Version None)
Quarter: 2008Q3

REPORT INFORMATION
  Report Type: 
  Country: None (occurrence: None)
  Receive Date: 20080729
  Receipt Date: 20080718
  Transmission Date: 20090109
  Serious: Yes (Other)
  Sender: FDA-Public Use
  Company Number: PHFR2006GB01715

PATIENT
  Sex: Female

DRUGS (2)
  1. BACLOFEN [Suspect]
     Indication: MUSCLE SPASTICITY
     Dosage: 201.6 MCG/24HRS
     Route: 037
  2. CEPHALOSPORINES [Concomitant]
     Indication: URINARY TRACT INFECTION
     Route: 048

REACTIONS (7)
  - CAESAREAN SECTION [None]
  - DRUG EXPOSURE DURING PREGNANCY [None]
  - FATIGUE [None]
  - MUSCLE SPASMS [None]
  - PREMATURE BABY [None]
  - TRANSVERSE PRESENTATION [None]
  - URINARY TRACT INFECTION [None]
